FAERS Safety Report 13464573 (Version 1)
Quarter: 2017Q2

REPORT INFORMATION
  Report Type: Spontaneous
  Country: US (occurrence: US)
  Receive Date: 20170420
  Receipt Date: 20170420
  Transmission Date: 20170830
  Serious: Yes (Hospitalization)
  Sender: FDA-Public Use
  Company Number: US-ROCHE-697093

PATIENT
  Age: 17 Year
  Sex: Male
  Weight: 149 kg

DRUGS (2)
  1. ACCUTANE [Suspect]
     Active Substance: ISOTRETINOIN
     Indication: ACNE
     Route: 065
     Dates: start: 19990913, end: 19990927
  2. ACCUTANE [Suspect]
     Active Substance: ISOTRETINOIN
     Route: 065
     Dates: start: 19990928, end: 200002

REACTIONS (6)
  - Crohn^s disease [Unknown]
  - Dry skin [Unknown]
  - Headache [Unknown]
  - Injury [Unknown]
  - Lip dry [Unknown]
  - Inflammatory bowel disease [Unknown]

NARRATIVE: CASE EVENT DATE: 19991025
